FAERS Safety Report 22103794 (Version 1)
Quarter: 2023Q1

REPORT INFORMATION
  Report Type: Report from Study
  Country: EG (occurrence: EG)
  Receive Date: 20230316
  Receipt Date: 20230316
  Transmission Date: 20230418
  Serious: Yes (Other)
  Sender: FDA-Public Use
  Company Number: EG-002147023-NVSC2023EG057101

PATIENT
  Age: 9 Year
  Sex: Female

DRUGS (4)
  1. OMNITROPE [Suspect]
     Active Substance: SOMATROPIN
     Indication: Product used for unknown indication
     Dosage: 0.9 THEN INCREASED TO 1 MG
     Route: 058
  2. ZINC [Concomitant]
     Active Substance: ZINC
     Indication: Growth retardation
     Dosage: 1 DOSAGE FORM, QD, (SINCE 2 MONTHS AGO)
     Route: 065
  3. CALCIUM [Concomitant]
     Active Substance: CALCIUM
     Indication: Bone disorder
     Dosage: 1 DRP, QD, (SINCE 2 MONTHS AGO) (DROPS)
     Route: 065
  4. DUPHALAC [Concomitant]
     Active Substance: LACTULOSE
     Indication: Megacolon
     Dosage: THE DOSE IS VARIABLE EVERY MONTH, (SINCE ONE YEAR AND HALF)
     Route: 065

REACTIONS (3)
  - Growth retardation [Not Recovered/Not Resolved]
  - Product dose omission issue [Recovered/Resolved]
  - Off label use [Not Recovered/Not Resolved]

NARRATIVE: CASE EVENT DATE: 20230201
